FAERS Safety Report 23262660 (Version 1)
Quarter: 2023Q4

REPORT INFORMATION
  Report Type: Spontaneous
  Country: AU (occurrence: AU)
  Receive Date: 20231205
  Receipt Date: 20231205
  Transmission Date: 20240109
  Serious: Yes (Other)
  Sender: FDA-Public Use
  Company Number: AU-OTSUKA AUSTRALIA PHARMACEUTICALS PTY LTD-2023_031223

PATIENT
  Age: 9 Decade
  Sex: Male

DRUGS (1)
  1. INQOVI [Suspect]
     Active Substance: CEDAZURIDINE\DECITABINE
     Indication: Product used for unknown indication
     Dosage: 1 DF (35 MG DECITABINE AND 100 MG CEDAZURIDINE)
     Route: 065

REACTIONS (1)
  - Squamous cell carcinoma of skin [Unknown]
